FAERS Safety Report 20018063 (Version 1)
Quarter: 2021Q4

REPORT INFORMATION
  Report Type: Spontaneous
  Country: AU (occurrence: AU)
  Receive Date: 20211101
  Receipt Date: 20211101
  Transmission Date: 20220303
  Serious: Yes (Other)
  Sender: FDA-Public Use
  Company Number: AU-BIOGEN-2021BI01063284

PATIENT
  Sex: Female

DRUGS (1)
  1. TECFIDERA [Suspect]
     Active Substance: DIMETHYL FUMARATE
     Indication: Multiple sclerosis
     Route: 048

REACTIONS (21)
  - Heat stroke [Unknown]
  - Adenomatous polyposis coli [Unknown]
  - Cholelithiasis [Unknown]
  - Gastrooesophageal reflux disease [Unknown]
  - Lower respiratory tract infection [Unknown]
  - Malaise [Unknown]
  - Middle insomnia [Unknown]
  - Muscle spasms [Unknown]
  - Nephrolithiasis [Unknown]
  - Paraesthesia [Unknown]
  - Stress [Unknown]
  - Viral infection [Unknown]
  - Prescribed underdose [Unknown]
  - Abdominal discomfort [Unknown]
  - Dyspepsia [Unknown]
  - Feeling hot [Unknown]
  - Flushing [Unknown]
  - Lymphocyte count decreased [Unknown]
  - Nausea [Unknown]
  - Pruritus [Unknown]
  - Vomiting [Unknown]
